FAERS Safety Report 18112529 (Version 1)
Quarter: 2020Q3

REPORT INFORMATION
  Report Type: Spontaneous
  Country: TW (occurrence: TW)
  Receive Date: 20200805
  Receipt Date: 20200805
  Transmission Date: 20201103
  Serious: Yes (Other)
  Sender: FDA-Public Use
  Company Number: TW-ELI_LILLY_AND_COMPANY-TW202007011551

PATIENT
  Age: 65 Year
  Sex: Female

DRUGS (6)
  1. ATORVASTATIN [Concomitant]
     Active Substance: ATORVASTATIN
     Indication: LIPIDS INCREASED
     Dosage: 40 MG, DAILY
  2. METFORMIN [Concomitant]
     Active Substance: METFORMIN HYDROCHLORIDE
     Indication: PRODUCT USED FOR UNKNOWN INDICATION
     Dosage: 500 MG, BID
  3. BISOPROLOL [Concomitant]
     Active Substance: BISOPROLOL
     Indication: LIPIDS INCREASED
     Dosage: 5 MG, DAILY
  4. TRULICITY [Suspect]
     Active Substance: DULAGLUTIDE
     Indication: GLYCOSYLATED HAEMOGLOBIN INCREASED
  5. VALSARTAN. [Concomitant]
     Active Substance: VALSARTAN
     Indication: LIPIDS INCREASED
     Dosage: 80 MG, DAILY
  6. TRULICITY [Suspect]
     Active Substance: DULAGLUTIDE
     Indication: OBESITY
     Dosage: 1.5 MG, UNKNOWN
     Route: 058
     Dates: start: 20200720

REACTIONS (2)
  - Cardiac disorder [Unknown]
  - Syncope [Unknown]

NARRATIVE: CASE EVENT DATE: 20200720
